FAERS Safety Report 6215973-4 (Version None)
Quarter: 2009Q2

REPORT INFORMATION
  Report Type: 
  Country: None (occurrence: None)
  Receive Date: 20090605
  Receipt Date: 20090601
  Transmission Date: 20091009
  Serious: Yes (Hospitalization, Other)
  Sender: FDA-Public Use
  Company Number: IT-ROXANE LABORATORIES, INC.-2009-RO-00549RO

PATIENT
  Age: 78 Year
  Sex: Female

DRUGS (4)
  1. DIAZEPAM [Suspect]
  2. VENLAFAXINE HCL [Suspect]
  3. TRAZODONE HCL [Suspect]
  4. DULOXETINE HYDROCHLORIDE [Concomitant]
     Dosage: 60MG

REACTIONS (3)
  - CENTRAL NERVOUS SYSTEM LESION [None]
  - MARCHIAFAVA-BIGNAMI DISEASE [None]
  - SELF-MEDICATION [None]
